FAERS Safety Report 5534396-4 (Version None)
Quarter: 2007Q4

REPORT INFORMATION
  Report Type: 
  Country: None (occurrence: None)
  Receive Date: 20071120
  Receipt Date: 20070807
  Transmission Date: 20080405
  Serious: No
  Sender: FDA-Public Use
  Company Number: 2007SP014439

PATIENT
  Age: 16 Year
  Sex: Male

DRUGS (8)
  1. NOXAFIL [Suspect]
     Indication: BRONCHOPULMONARY ASPERGILLOSIS
     Dosage: 400 MG;Q12H;PO
     Route: 048
     Dates: start: 20070525, end: 20070526
  2. AMBISOME [Concomitant]
  3. VORICONAZOLE [Concomitant]
  4. CASPOFUNGIN [Concomitant]
  5. ITRACONAZOLE [Concomitant]
  6. ACTIMMUNE [Concomitant]
  7. EPOGEN [Concomitant]
  8. ADVAIR DISKUS 100/50 [Concomitant]

REACTIONS (1)
  - HYPERSENSITIVITY [None]
